FAERS Safety Report 9841894 (Version 1)
Quarter: 2014Q1

REPORT INFORMATION
  Report Type: Report from Study
  Country: US (occurrence: US)
  Receive Date: 20140124
  Receipt Date: 20140124
  Transmission Date: 20141002
  Serious: Yes (Hospitalization)
  Sender: FDA-Public Use
  Company Number: US-JNJFOC-20140111456

PATIENT
  Age: 51 Year
  Sex: Female
  Weight: 77.11 kg

DRUGS (12)
  1. REMICADE [Suspect]
     Indication: PSORIATIC ARTHROPATHY
     Route: 042
     Dates: start: 2012
  2. REMICADE [Suspect]
     Indication: PSORIATIC ARTHROPATHY
     Route: 042
     Dates: start: 20140113
  3. LITHIUM [Suspect]
     Indication: MOOD SWINGS
     Route: 048
     Dates: start: 201209, end: 201212
  4. DEPAKOTE [Concomitant]
     Indication: MOOD SWINGS
     Route: 048
     Dates: start: 201312
  5. WELLBUTRIN [Concomitant]
     Indication: DEPRESSION
     Route: 048
     Dates: start: 201209
  6. BENADRYL [Concomitant]
     Indication: SLEEP DISORDER THERAPY
     Route: 048
     Dates: start: 201209
  7. BENADRYL [Concomitant]
     Indication: PREMEDICATION
     Route: 065
     Dates: start: 20140113, end: 20140113
  8. FOLIC ACID [Concomitant]
     Indication: PSORIATIC ARTHROPATHY
     Route: 048
     Dates: start: 2013
  9. METHOTREXATE [Concomitant]
     Indication: PSORIATIC ARTHROPATHY
     Route: 065
     Dates: start: 2013
  10. KLONOPIN [Concomitant]
     Indication: ANXIETY
     Route: 048
     Dates: start: 201209
  11. KLONOPIN [Concomitant]
     Indication: SLEEP DISORDER THERAPY
     Route: 048
     Dates: start: 201209
  12. STEROIDS NOS [Concomitant]
     Indication: PREMEDICATION
     Route: 065
     Dates: start: 20140113, end: 20140113

REACTIONS (7)
  - Mental disorder [Unknown]
  - Infusion related reaction [Recovered/Resolved]
  - Feeling hot [Recovered/Resolved]
  - Fatigue [Recovered/Resolved]
  - Discomfort [Recovered/Resolved]
  - Pain [Recovered/Resolved]
  - Renal disorder [Unknown]
